FAERS Safety Report 8607333-3 (Version None)
Quarter: 2012Q3

REPORT INFORMATION
  Report Type: 
  Country: None (occurrence: None)
  Receive Date: 20120821
  Receipt Date: 20120814
  Transmission Date: 20120928
  Serious: Yes (Other)
  Sender: FDA-Public Use
  Company Number: US-PFIZER INC-2012199792

PATIENT
  Age: 77 Year
  Sex: Female
  Weight: 54.422 kg

DRUGS (2)
  1. FLAGYL [Suspect]
     Indication: GASTRIC INFECTION
     Dosage: 500 MG, 3X/DAY
     Dates: start: 20120720
  2. AMLODIPINE [Concomitant]
     Indication: BLOOD PRESSURE INCREASED
     Dosage: 10 MG, DAILY
     Dates: start: 20090101

REACTIONS (1)
  - NEUROPATHY PERIPHERAL [None]
